FAERS Safety Report 5921119-X (Version None)
Quarter: 2008Q4

REPORT INFORMATION
  Report Type: 
  Country: None (occurrence: None)
  Receive Date: 20081016
  Receipt Date: 20081003
  Transmission Date: 20090506
  Serious: Yes (Other)
  Sender: FDA-Public Use
  Company Number: AU-ELI_LILLY_AND_COMPANY-AU200809001354

PATIENT
  Sex: Male

DRUGS (3)
  1. ZYPREXA [Suspect]
     Indication: MOOD ALTERED
     Dosage: 5 MG, UNK
     Dates: start: 20080716, end: 20080825
  2. FLUOXETINE [Concomitant]
     Indication: DEPRESSION
     Dosage: 20 MG, UNK
  3. THIAMINE HCL [Concomitant]
     Indication: ALCOHOL ABUSE
     Dosage: 100 MG, UNK

REACTIONS (6)
  - ABDOMINAL DISTENSION [None]
  - CHEST PAIN [None]
  - HEADACHE [None]
  - LIVER DISORDER [None]
  - PAIN [None]
  - SLEEP DISORDER [None]
